FAERS Safety Report 4623905-5 (Version None)
Quarter: 2005Q1

REPORT INFORMATION
  Report Type: 
  Country: None (occurrence: None)
  Receive Date: 20050331
  Receipt Date: 20050316
  Transmission Date: 20050727
  Serious: Yes (Hospitalization)
  Sender: FDA-Public Use
  Company Number: US-BOEHRINGER INGELHEIM PHARMACEUTICALS, INC.-2005-DE-01061GD

PATIENT
  Age: 43 Year
  Sex: Male

DRUGS (16)
  1. CALCIUM CARBONATE [Suspect]
     Route: 048
  2. CLONIDINE [Suspect]
     Indication: PAIN
     Route: 062
  3. KETOROLAC [Suspect]
     Indication: PAIN
     Route: 042
  4. CLONIDINE [Concomitant]
  5. ASPIRIN [Concomitant]
  6. LANSOPRAZOLE [Concomitant]
  7. AMLODIPINE [Concomitant]
  8. ATORVASTATIN CALCIUM [Concomitant]
  9. GABAPENTIN [Concomitant]
  10. CLOPIDOGREL [Concomitant]
  11. INSULIN [Concomitant]
     Indication: DIABETES MELLITUS INSULIN-DEPENDENT
  12. FUROSEMIDE [Concomitant]
  13. FENTANYL [Concomitant]
  14. HYDROCODONE [Concomitant]
  15. LACTULOSE [Concomitant]
  16. PROCHLORPERAZINE [Concomitant]

REACTIONS (14)
  - CALCIPHYLAXIS [None]
  - DRUG INEFFECTIVE [None]
  - EXTREMITY NECROSIS [None]
  - INADEQUATE ANALGESIA [None]
  - INFARCTION [None]
  - NECROSIS [None]
  - OPEN WOUND [None]
  - ORGAN TRANSPLANT [None]
  - PARATHYROIDECTOMY [None]
  - PENIS DISORDER [None]
  - PHIMOSIS [None]
  - THERAPY NON-RESPONDER [None]
  - URINARY RETENTION [None]
  - URINARY TRACT INFECTION FUNGAL [None]
